FAERS Safety Report 17440693 (Version 1)
Quarter: 2020Q1

REPORT INFORMATION
  Report Type: Spontaneous
  Country: US (occurrence: US)
  Receive Date: 20200220
  Receipt Date: 20200220
  Transmission Date: 20200409
  Serious: Yes (Death, Hospitalization)
  Sender: FDA-Public Use
  Company Number: US-MYLANLABS-2020M1019026

PATIENT
  Age: 2 Year
  Sex: Male

DRUGS (3)
  1. METHADONE [Suspect]
     Active Substance: METHADONE HYDROCHLORIDE
     Indication: PRODUCT USED FOR UNKNOWN INDICATION
     Dosage: FORMULATION: PILLS; THE BOY NOTED WITH OPEN METHADONE BOTTLE AND 20 MISSING PILLS
     Route: 048
  2. EPINEPHRINE. [Suspect]
     Active Substance: EPINEPHRINE
     Indication: CARDIAC ARREST
     Dosage: UNK
  3. NALOXONE [Suspect]
     Active Substance: NALOXONE
     Indication: TOXICITY TO VARIOUS AGENTS
     Dosage: UNK

REACTIONS (5)
  - Toxicity to various agents [Fatal]
  - Drug ineffective [Fatal]
  - Overdose [Fatal]
  - Cardiac arrest [Fatal]
  - Lethargy [Unknown]
